FAERS Safety Report 24773118 (Version 1)
Quarter: 2024Q4

REPORT INFORMATION
  Report Type: Spontaneous
  Country: US (occurrence: US)
  Receive Date: 20241225
  Receipt Date: 20241225
  Transmission Date: 20250115
  Serious: No
  Sender: TEVA
  Company Number: US-TEVA-VS-3273716

PATIENT
  Age: 80 Year
  Sex: Female

DRUGS (1)
  1. CLONIDINE HYDROCHLORIDE [Suspect]
     Active Substance: CLONIDINE HYDROCHLORIDE
     Indication: Hypertension
     Route: 065

REACTIONS (5)
  - Skin burning sensation [Unknown]
  - Skin irritation [Unknown]
  - Pruritus [Unknown]
  - Hypersensitivity [Unknown]
  - Scar [Unknown]
